FAERS Safety Report 14650652 (Version 1)
Quarter: 2018Q1

REPORT INFORMATION
  Report Type: Spontaneous
  Country: CA (occurrence: CA)
  Receive Date: 20180316
  Receipt Date: 20180316
  Transmission Date: 20180509
  Serious: Yes (Death)
  Sender: FDA-Public Use
  Company Number: CA-TEVA-2018-CA-868651

PATIENT
  Age: 61 Year
  Sex: Female
  Weight: 58 kg

DRUGS (3)
  1. TRAZODONE [Suspect]
     Active Substance: TRAZODONE HYDROCHLORIDE
  2. CITALOPRAM [Suspect]
     Active Substance: CITALOPRAM HYDROBROMIDE
  3. ALPRAZOLAM. [Suspect]
     Active Substance: ALPRAZOLAM

REACTIONS (2)
  - Overdose [Fatal]
  - Toxicologic test abnormal [Fatal]
